FAERS Safety Report 17701644 (Version 1)
Quarter: 2020Q2

REPORT INFORMATION
  Report Type: Spontaneous
  Country: NL (occurrence: NL)
  Receive Date: 20200424
  Receipt Date: 20200424
  Transmission Date: 20200714
  Serious: Yes (Hospitalization, Other)
  Sender: FDA-Public Use
  Company Number: NL-AUROBINDO-AUR-APL-2020-020313

PATIENT

DRUGS (4)
  1. LEUCOVORIN. [Suspect]
     Active Substance: LEUCOVORIN
     Indication: COLORECTAL CANCER
     Dosage: 400 MILLIGRAM/SQ. METER
     Route: 042
     Dates: start: 20190920
  2. 5 FU [Suspect]
     Active Substance: FLUOROURACIL
     Indication: COLORECTAL CANCER
     Dosage: 400 MILLIGRAM/SQ. METER
     Route: 065
     Dates: start: 20190920
  3. BEVACIZUMAB. [Suspect]
     Active Substance: BEVACIZUMAB
     Indication: COLORECTAL CANCER
     Dosage: 5 MILLIGRAM/KILOGRAM
     Route: 042
     Dates: start: 20190920
  4. OXALIPLATIN CONCENTRATE FOR SOLUTION FOR INFUSION [Suspect]
     Active Substance: OXALIPLATIN
     Indication: COLORECTAL CANCER
     Dosage: 85 MILLIGRAM/SQ. METER
     Route: 042
     Dates: start: 20190920

REACTIONS (1)
  - Large intestine perforation [Recovering/Resolving]

NARRATIVE: CASE EVENT DATE: 20191223
